FAERS Safety Report 16893630 (Version 1)
Quarter: 2019Q4

REPORT INFORMATION
  Report Type: Spontaneous
  Country: US (occurrence: US)
  Receive Date: 20191008
  Receipt Date: 20191008
  Transmission Date: 20200122
  Serious: Yes (Death, Other)
  Sender: FDA-Public Use
  Company Number: US-ROCHE-2433966

PATIENT
  Age: 8 Year
  Sex: Female

DRUGS (12)
  1. METHYLPREDNISOLONE. [Suspect]
     Active Substance: METHYLPREDNISOLONE
     Indication: PROPHYLAXIS AGAINST TRANSPLANT REJECTION
     Route: 042
  2. GENTAMICIN. [Concomitant]
     Active Substance: GENTAMICIN
     Route: 065
  3. AMPHOTERICIN [Concomitant]
     Active Substance: AMPHOTERICIN B
     Route: 065
  4. MYCOPHENOLATE MOFETIL. [Suspect]
     Active Substance: MYCOPHENOLATE MOFETIL
     Indication: PROPHYLAXIS AGAINST TRANSPLANT REJECTION
     Route: 065
  5. RIBAVIRIN. [Suspect]
     Active Substance: RIBAVIRIN
     Indication: PNEUMONIA VIRAL
     Dosage: ON POSTOPERATIVE DAY 49 AS A LOADING DOSE
     Route: 042
  6. RIBAVIRIN. [Suspect]
     Active Substance: RIBAVIRIN
     Dosage: DIVIDED 4 TIMES/DAY FOR 4 DAYS
     Route: 042
  7. POLYMYXIN [Concomitant]
     Active Substance: POLYMYXIN
     Route: 065
  8. GANCICLOVIR. [Concomitant]
     Active Substance: GANCICLOVIR
     Route: 042
  9. TACROLIMUS. [Suspect]
     Active Substance: TACROLIMUS
     Indication: PROPHYLAXIS AGAINST TRANSPLANT REJECTION
     Route: 065
  10. RIBAVIRIN. [Suspect]
     Active Substance: RIBAVIRIN
     Dosage: FOLLOWED BY 8 MG/KG/DOSE DIVIDED 3 TIMES/DAY FOR 3 DAYS
     Route: 042
  11. NEOMYCIN SULFATE. [Concomitant]
     Active Substance: NEOMYCIN SULFATE
     Route: 065
  12. LACTULOSE. [Concomitant]
     Active Substance: LACTULOSE
     Dosage: 30 ML/DOSE
     Route: 065

REACTIONS (3)
  - Fungaemia [Fatal]
  - Pneumonia viral [Unknown]
  - Hyperammonaemia [Recovering/Resolving]
